FAERS Safety Report 7941325-2 (Version None)
Quarter: 2011Q4

REPORT INFORMATION
  Report Type: 
  Country: None (occurrence: None)
  Receive Date: 20111128
  Receipt Date: 20111121
  Transmission Date: 20120403
  Serious: Yes (Other)
  Sender: FDA-Public Use
  Company Number: US-UCBSA-044074

PATIENT
  Age: 31 Year
  Sex: Female
  Weight: 77.272 kg

DRUGS (3)
  1. AZANE [Concomitant]
     Indication: CROHN'S DISEASE
     Route: 048
     Dates: start: 20080101
  2. CIMZIA [Suspect]
     Indication: CROHN'S DISEASE
     Route: 058
     Dates: start: 20110923
  3. PENTASA [Concomitant]
     Indication: CROHN'S DISEASE
     Dosage: 6 PILLS A DAY
     Route: 048
     Dates: start: 20080101

REACTIONS (1)
  - VULVOVAGINAL MYCOTIC INFECTION [None]
